FAERS Safety Report 6526555-9 (Version None)
Quarter: 2010Q1

REPORT INFORMATION
  Report Type: 
  Country: None (occurrence: None)
  Receive Date: 20100105
  Receipt Date: 20091223
  Transmission Date: 20100710
  Serious: Yes (Other)
  Sender: FDA-Public Use
  Company Number: PHEH2009US09784

PATIENT
  Sex: Female

DRUGS (5)
  1. EXJADE [Suspect]
     Indication: SICKLE CELL ANAEMIA
     Dosage: 1500 MG, QD
     Route: 048
     Dates: start: 20080919, end: 20090201
  2. EXJADE [Suspect]
     Indication: SERUM FERRITIN INCREASED
     Dosage: 750 MG, UNK
     Dates: start: 20090618
  3. FOLIC ACID [Concomitant]
     Indication: RED BLOOD CELL COUNT INCREASED
     Dosage: 1 MG, QD
     Route: 048
     Dates: start: 20070105
  4. DURAGESIC-100 [Concomitant]
     Indication: PAIN
     Dosage: 75 MEQ, Q72H
     Route: 062
     Dates: start: 20090129
  5. PERCOCET [Concomitant]
     Indication: PAIN
     Dosage: 5/325, Q 4-6
     Route: 048
     Dates: start: 20090129

REACTIONS (10)
  - ACNE [None]
  - ANXIETY [None]
  - BLISTER [None]
  - DIARRHOEA [None]
  - FAECES DISCOLOURED [None]
  - HAEMATOCRIT DECREASED [None]
  - HAEMOGLOBIN DECREASED [None]
  - MIGRAINE [None]
  - NAUSEA [None]
  - SERUM FERRITIN INCREASED [None]
